FAERS Safety Report 7575046-5 (Version None)
Quarter: 2011Q2

REPORT INFORMATION
  Report Type: 
  Country: None (occurrence: None)
  Receive Date: 20110627
  Receipt Date: 20110614
  Transmission Date: 20111010
  Serious: Yes (Other)
  Sender: FDA-Public Use
  Company Number: PHHY2011US32006

PATIENT
  Sex: Male

DRUGS (2)
  1. EXJADE [Suspect]
     Indication: THALASSAEMIA
     Dosage: 675 MG, QD
     Route: 048
     Dates: start: 20110301
  2. EXJADE [Suspect]
     Indication: SERUM FERRITIN INCREASED
     Dosage: 375 MG, QD
     Route: 048
     Dates: end: 20110303

REACTIONS (1)
  - BLOOD CREATININE INCREASED [None]
